FAERS Safety Report 6565877-2 (Version None)
Quarter: 2010Q1

REPORT INFORMATION
  Report Type: 
  Country: None (occurrence: None)
  Receive Date: 20100201
  Receipt Date: 20100120
  Transmission Date: 20100710
  Serious: Yes (Death)
  Sender: FDA-Public Use
  Company Number: FI-GENENTECH-295936

PATIENT
  Sex: Female

DRUGS (11)
  1. RITUXIMAB [Suspect]
     Indication: RHEUMATOID ARTHRITIS
     Dosage: 1000 MG, UNK
     Route: 042
     Dates: start: 20051220
  2. RITUXIMAB [Suspect]
     Dosage: 1000 MG, UNK
     Route: 042
     Dates: start: 20070101, end: 20090305
  3. PREDNISOLON [Concomitant]
     Indication: RHEUMATOID ARTHRITIS
     Dosage: 10 MG, QD
  4. PREDNISOLON [Concomitant]
     Dosage: UNK
     Dates: start: 20090204
  5. PREDNISOLON [Concomitant]
     Dosage: 15 MG, 1/WEEK
     Dates: start: 20090923
  6. METHOTREXATE [Concomitant]
     Indication: DRUG USE FOR UNKNOWN INDICATION
     Dosage: 10 MG, 1/WEEK
     Route: 030
     Dates: start: 20090204
  7. METHOTREXATE [Concomitant]
     Dosage: 20 MG, UNK
     Route: 030
     Dates: start: 20090603
  8. METHOTREXATE [Concomitant]
     Dosage: 20 MG, 1/WEEK
     Route: 030
     Dates: start: 20090923
  9. ANALGESICS [Concomitant]
     Indication: RHEUMATOID ARTHRITIS
     Dosage: UNK
     Dates: start: 20080404
  10. ANALGESICS [Concomitant]
     Dosage: UNK
     Dates: start: 20090404
  11. NSAID NOS OR COMPARATOR [Concomitant]
     Indication: RHEUMATOID ARTHRITIS
     Dosage: UNK
     Dates: start: 20080428

REACTIONS (4)
  - ATRIAL FIBRILLATION [None]
  - CARDIAC FAILURE [None]
  - POST PROCEDURAL MYOCARDIAL INFARCTION [None]
  - SMALL CELL LUNG CANCER STAGE UNSPECIFIED [None]
